FAERS Safety Report 4650726-X (Version None)
Quarter: 2005Q2

REPORT INFORMATION
  Report Type: 
  Country: None (occurrence: None)
  Receive Date: 20050503
  Receipt Date: 20041105
  Transmission Date: 20051028
  Serious: Yes (Hospitalization)
  Sender: FDA-Public Use
  Company Number: US-2004-BP-11344BP

PATIENT
  Age: 58 Year
  Sex: Female

DRUGS (2)
  1. SPIRIVA [Suspect]
     Indication: CHRONIC OBSTRUCTIVE PULMONARY DISEASE
     Route: 055
     Dates: start: 20041001
  2. ALBUTEROL [Concomitant]
     Indication: CHRONIC OBSTRUCTIVE PULMONARY DISEASE

REACTIONS (9)
  - AGEUSIA [None]
  - COUGH [None]
  - DYSPNOEA [None]
  - ERYTHEMA [None]
  - LARYNGOSPASM [None]
  - PHARYNGEAL ERYTHEMA [None]
  - PHARYNGEAL OEDEMA [None]
  - PHARYNGOLARYNGEAL PAIN [None]
  - THROAT TIGHTNESS [None]
